FAERS Safety Report 14730035 (Version 1)
Quarter: 2018Q2

REPORT INFORMATION
  Report Type: Spontaneous
  Country: US (occurrence: US)
  Receive Date: 20180402
  Receipt Date: 20180402
  Transmission Date: 20180711
  Serious: Yes (Hospitalization)
  Sender: FDA-Public Use
  Company Number: None

PATIENT
  Age: 69 Year
  Sex: Male
  Weight: 122.47 kg

DRUGS (1)
  1. DAPTOMYCIN 500MG VIAL HOSPIRA/PFIZER [Suspect]
     Active Substance: DAPTOMYCIN
     Indication: CELLULITIS
     Route: 042
     Dates: start: 20180331, end: 20180331

REACTIONS (2)
  - Pyrexia [None]
  - Chills [None]

NARRATIVE: CASE EVENT DATE: 20180331
